FAERS Safety Report 8856484 (Version 1)
Quarter: 2012Q4

REPORT INFORMATION
  Report Type: 
  Country: US (occurrence: US)
  Receive Date: 20121023
  Receipt Date: 20121023
  Transmission Date: 20130627
  Serious: No
  Sender: FDA-Public Use
  Company Number: US-AMGEN-USASP2012057064

PATIENT
  Age: 49 Year
  Sex: Female
  Weight: 104.76 kg

DRUGS (9)
  1. ENBREL [Suspect]
     Indication: PRODUCT USED FOR UNKNOWN INDICATION
     Dosage: 50 mg, qwk
     Route: 058
  2. AMLODIPINE [Concomitant]
     Dosage: 5 mg, UNK
  3. TRAMADOL [Concomitant]
     Dosage: 50 mg, UNK
  4. RANITIDINE [Concomitant]
     Dosage: 300 mg, UNK
  5. LYRICA [Concomitant]
     Dosage: 50 mg, UNK
  6. GLIMEPIRIDE [Concomitant]
     Dosage: 4 mg, UNK
  7. LISINOPRIL [Concomitant]
     Dosage: 20 mg, UNK
  8. FLUTICASONE [Concomitant]
     Dosage: 50 mcg
  9. CRESTOR [Concomitant]
     Dosage: 40 mg, UNK

REACTIONS (2)
  - Decreased appetite [Unknown]
  - Thirst [Unknown]
